FAERS Safety Report 21544546 (Version 4)
Quarter: 2022Q4

REPORT INFORMATION
  Report Type: Report from Study
  Country: CN (occurrence: CN)
  Receive Date: 20221102
  Receipt Date: 20221118
  Transmission Date: 20230112
  Serious: Yes (Hospitalization)
  Sender: FDA-Public Use
  Company Number: CN-JNJFOC-20221055298

PATIENT
  Age: 66 Year
  Sex: Male
  Weight: 81 kg

DRUGS (11)
  1. AMIVANTAMAB [Suspect]
     Active Substance: AMIVANTAMAB
     Indication: Non-small cell lung cancer metastatic
     Route: 042
     Dates: start: 20211126, end: 20221013
  2. INSULIN GLARGINE [Concomitant]
     Active Substance: INSULIN GLARGINE
     Indication: Diabetes mellitus
     Route: 058
     Dates: start: 20211119
  3. FUSIDIC ACID [Concomitant]
     Active Substance: FUSIDIC ACID
     Indication: Rash
     Route: 061
     Dates: start: 20220120
  4. FUSIDIC ACID [Concomitant]
     Active Substance: FUSIDIC ACID
     Indication: Paronychia
  5. METOPROLOL TARTRATE [Concomitant]
     Active Substance: METOPROLOL TARTRATE
     Route: 048
     Dates: start: 20220805
  6. FENTANYL [Concomitant]
     Active Substance: FENTANYL
     Indication: Arthralgia
     Route: 050
     Dates: start: 20221007
  7. FENTANYL [Concomitant]
     Active Substance: FENTANYL
     Indication: Arthralgia
  8. OXYCODONE AND ACETAMINOPHEN [Concomitant]
     Active Substance: ACETAMINOPHEN\OXYCODONE HYDROCHLORIDE
     Indication: Arthralgia
     Route: 048
     Dates: start: 20221011
  9. OXYCODONE AND ACETAMINOPHEN [Concomitant]
     Active Substance: ACETAMINOPHEN\OXYCODONE HYDROCHLORIDE
     Indication: Arthralgia
  10. DISODIUM CANTHARIDINATE AND VITAMIN B6 [Concomitant]
     Indication: Lung neoplasm malignant
     Route: 042
     Dates: start: 20221026, end: 20221101
  11. CEFPIRAMIDE SODIUM [Concomitant]
     Active Substance: CEFPIRAMIDE SODIUM
     Indication: Antiinflammatory therapy
     Route: 042
     Dates: start: 20221026, end: 20221101

REACTIONS (1)
  - Pulmonary embolism [Recovering/Resolving]

NARRATIVE: CASE EVENT DATE: 20221026
